FAERS Safety Report 10168931 (Version 1)
Quarter: 2014Q2

REPORT INFORMATION
  Report Type: Spontaneous
  Country: US (occurrence: None)
  Receive Date: 20140512
  Receipt Date: 20140512
  Transmission Date: 20141212
  Serious: No
  Sender: FDA-Public Use
  Company Number: None

PATIENT
  Age: 39 Year
  Sex: Male
  Weight: 112.95 kg

DRUGS (6)
  1. LAMICTAL [Suspect]
     Indication: AFFECTIVE DISORDER
     Dosage: 2.5 PILLS, QHS/BEDTIME, ORAL
     Route: 048
     Dates: start: 20120401, end: 20120523
  2. RISPERDAL [Concomitant]
  3. INTUNIV [Concomitant]
  4. KLONOPIN [Concomitant]
  5. LITHOBID [Concomitant]
  6. LOVAZA [Concomitant]

REACTIONS (2)
  - Headache [None]
  - Feeling abnormal [None]
